FAERS Safety Report 22154583 (Version 3)
Quarter: 2023Q2

REPORT INFORMATION
  Report Type: Spontaneous
  Country: JP (occurrence: JP)
  Receive Date: 20230330
  Receipt Date: 20230518
  Transmission Date: 20230722
  Serious: No
  Sender: FDA-Public Use
  Company Number: JP-BAYER-2023A038460

PATIENT
  Age: 91 Year
  Sex: Male
  Weight: 70.1 kg

DRUGS (3)
  1. VERICIGUAT HYDROCHLORIDE [Suspect]
     Active Substance: VERICIGUAT HYDROCHLORIDE
     Indication: Cardiac failure chronic
     Dosage: DAILY DOSE 2.5 MG
     Route: 048
     Dates: start: 20230309
  2. VERICIGUAT HYDROCHLORIDE [Suspect]
     Active Substance: VERICIGUAT HYDROCHLORIDE
     Indication: Cardiac failure
  3. FUROSEMIDE [Concomitant]
     Active Substance: FUROSEMIDE
     Indication: Cardiac failure
     Dosage: DAILY DOSE 20 MG
     Route: 042
     Dates: start: 20230309, end: 20230323

REACTIONS (5)
  - Colitis [Recovered/Resolved]
  - Diarrhoea [Recovered/Resolved]
  - Dyspepsia [Recovered/Resolved]
  - Benign prostatic hyperplasia [Unknown]
  - Prostatic calcification [Unknown]

NARRATIVE: CASE EVENT DATE: 20230319
